FAERS Safety Report 8830625 (Version 3)
Quarter: 2013Q1

REPORT INFORMATION
  Report Type: Spontaneous
  Country: GB (occurrence: None)
  Receive Date: 20121004
  Receipt Date: 20130212
  Transmission Date: 20140127
  Serious: Yes (Disabling, Other)
  Sender: FDA-Public Use
  Company Number: AUR-APL-2012-04192

PATIENT
  Age: 64 Year
  Sex: Female
  Weight: 48.1 kg

DRUGS (9)
  1. SIMVASTATIN [Suspect]
     Indication: HYPERCHOLESTEROLAEMIA
     Route: 048
     Dates: start: 20100128
  2. PRAVASTATIN [Suspect]
     Indication: HYPERCHOLESTEROLAEMIA
     Route: 048
     Dates: start: 20100205
  3. ATORVASTATIN (ATORVASTATIN) [Suspect]
     Indication: HYPERCHOLESTEROLAEMIA
     Route: 048
     Dates: start: 20100609
  4. AMLODIPINE (AMLODIPINE) [Concomitant]
  5. BENDROFLUAZIDE (BENDROFLUMETHIAZIDE) [Concomitant]
  6. PARACETAMOL (PARACETAMOL) [Concomitant]
  7. PROTHIADEN (DOSULEPIN) [Concomitant]
  8. SENNA (SENNA ALEXANDRINA) [Concomitant]
  9. RANITIDINE (RANITIDINE) [Concomitant]

REACTIONS (15)
  - Vision blurred [None]
  - Diplopia [None]
  - Pruritus [None]
  - Muscle spasms [None]
  - Weight decreased [None]
  - Paraesthesia [None]
  - Fatigue [None]
  - Ear disorder [None]
  - Pruritus [None]
  - Hepatomegaly [None]
  - Depression [None]
  - Vein disorder [None]
  - Skin disorder [None]
  - Cachexia [None]
  - Local swelling [None]
